FAERS Safety Report 25257987 (Version 2)
Quarter: 2025Q3

REPORT INFORMATION
  Report Type: Spontaneous
  Country: EU (occurrence: EU)
  Receive Date: 20250501
  Receipt Date: 20250809
  Transmission Date: 20251020
  Serious: Yes (Hospitalization, Other)
  Sender: ALEXION PHARMACEUTICALS
  Company Number: EU-AstraZeneca-CH-00856510A

PATIENT
  Age: 67 Year
  Sex: Male

DRUGS (1)
  1. DAPAGLIFLOZIN [Suspect]
     Active Substance: DAPAGLIFLOZIN
     Route: 065

REACTIONS (6)
  - Urinary tract infection [Unknown]
  - Abdominal wall abscess [Unknown]
  - Cellulitis [Unknown]
  - Lithotripsy [Recovered/Resolved]
  - Pyuria [Unknown]
  - Lithiasis [Recovered/Resolved]
